FAERS Safety Report 4307138-8 (Version None)
Quarter: 2004Q1

REPORT INFORMATION
  Report Type: 
  Country: None (occurrence: None)
  Receive Date: 20040225
  Receipt Date: 20040205
  Transmission Date: 20041129
  Serious: Yes (Death, Hospitalization)
  Sender: FDA-Public Use
  Company Number: FR_040203550

PATIENT
  Age: 58 Year
  Sex: Male

DRUGS (9)
  1. PROZAC [Suspect]
     Dosage: 20 MG/DAY
     Dates: start: 20030906
  2. ATARAX [Concomitant]
  3. LASIX [Concomitant]
  4. HEXAQUINE [Concomitant]
  5. OXAZEPAM [Concomitant]
  6. ALDACTONE [Concomitant]
  7. MAGNESIUM CITRATE [Concomitant]
  8. VITAMIN B1 AND B6 [Concomitant]
  9. VITAMIN B-12 [Concomitant]

REACTIONS (2)
  - DERMATITIS EXFOLIATIVE [None]
  - PSORIASIS [None]
